FAERS Safety Report 14164958 (Version 2)
Quarter: 2017Q4

REPORT INFORMATION
  Report Type: Report from Study
  Country: CA (occurrence: CA)
  Receive Date: 20171107
  Receipt Date: 20171211
  Transmission Date: 20180321
  Serious: Yes (Hospitalization, Other)
  Sender: FDA-Public Use
  Company Number: CA-BAYER-2017-118165

PATIENT
  Age: 76 Year
  Sex: Female
  Weight: 55.2 kg

DRUGS (4)
  1. SECARIS [Concomitant]
     Active Substance: PROPYLENE GLYCOL
     Indication: EPISTAXIS
     Dosage: UNK
  2. ADEMPAS [Suspect]
     Active Substance: RIOCIGUAT
     Indication: PULMONARY ARTERIAL HYPERTENSION
     Dosage: UNK
     Dates: start: 20160509
  3. ADEMPAS [Suspect]
     Active Substance: RIOCIGUAT
     Indication: PULMONARY ARTERIAL HYPERTENSION
     Dosage: 2.5 MG, TID
     Route: 048
  4. FLUVOXAMINE [Concomitant]
     Active Substance: FLUVOXAMINE
     Indication: DEPRESSION
     Dosage: UNK

REACTIONS (19)
  - Blood pressure diastolic decreased [None]
  - Drug intolerance [Recovering/Resolving]
  - Weight increased [Unknown]
  - Weight decreased [None]
  - Hospitalisation [Recovered/Resolved]
  - Blood pressure diastolic decreased [Not Recovered/Not Resolved]
  - Depression [Unknown]
  - Dyspnoea [None]
  - Dizziness [Not Recovered/Not Resolved]
  - Malaise [Recovering/Resolving]
  - Heart valve incompetence [Not Recovered/Not Resolved]
  - Pain in extremity [Not Recovered/Not Resolved]
  - Weight abnormal [None]
  - Blood pressure abnormal [Unknown]
  - Nausea [Recovering/Resolving]
  - Balance disorder [None]
  - Peripheral swelling [Not Recovered/Not Resolved]
  - Muscle atrophy [None]
  - Epistaxis [Recovering/Resolving]

NARRATIVE: CASE EVENT DATE: 20170918
